FAERS Safety Report 8208726-9 (Version None)
Quarter: 2012Q1

REPORT INFORMATION
  Report Type: 
  Country: None (occurrence: None)
  Receive Date: 20120314
  Receipt Date: 20120302
  Transmission Date: 20120608
  Serious: Yes (Hospitalization)
  Sender: FDA-Public Use
  Company Number: US-ROCHE-1045742

PATIENT
  Sex: Female

DRUGS (3)
  1. PEGINTERFERON ALFA-2A [Suspect]
     Indication: HEPATITIS C
     Dates: start: 20120123
  2. BOCEPREVIR [Suspect]
     Indication: HEPATITIS C
     Dates: start: 20120217
  3. COPEGUS [Suspect]
     Indication: HEPATITIS C
     Dates: start: 20120123

REACTIONS (3)
  - BLOOD SODIUM DECREASED [None]
  - FALL [None]
  - HEAD INJURY [None]
